FAERS Safety Report 25624410 (Version 1)
Quarter: 2025Q3

REPORT INFORMATION
  Report Type: Spontaneous
  Country: CN (occurrence: CN)
  Receive Date: 20250730
  Receipt Date: 20250730
  Transmission Date: 20251020
  Serious: Yes (Life-Threatening, Hospitalization, Other)
  Sender: BOEHRINGER INGELHEIM
  Company Number: CN-BoehringerIngelheim-2025-BI-086027

PATIENT
  Age: 65 Year
  Sex: Male
  Weight: 62 kg

DRUGS (3)
  1. OFEV [Suspect]
     Active Substance: NINTEDANIB
     Indication: Interstitial lung disease
     Dates: start: 20250703, end: 20250715
  2. 0.9% Sodium Chloride Injection (100mL) [Concomitant]
     Indication: Drug therapy
     Dates: start: 20250703, end: 20250703
  3. Pemetrexed Disodium for Injection  (Nisai 0.1g) [Concomitant]
     Indication: Lung neoplasm malignant
     Dates: start: 20250703, end: 20250703

REACTIONS (3)
  - Hepatic function abnormal [Recovering/Resolving]
  - Myelosuppression [Recovering/Resolving]
  - Platelet count decreased [Recovering/Resolving]

NARRATIVE: CASE EVENT DATE: 20250715
